FAERS Safety Report 14462958 (Version 2)
Quarter: 2018Q4

REPORT INFORMATION
  Report Type: Spontaneous
  Country: US (occurrence: US)
  Receive Date: 20180130
  Receipt Date: 20181127
  Transmission Date: 20190204
  Serious: Yes (Other)
  Sender: FDA-Public Use
  Company Number: US-PFIZER INC-2018030456

PATIENT
  Age: 75 Year
  Sex: Female

DRUGS (1)
  1. EFFEXOR XR [Suspect]
     Active Substance: VENLAFAXINE HYDROCHLORIDE
     Indication: DEPRESSION
     Dosage: 225 MG, DAILY (TAKE 1 CAPSULE (150 MG TOTAL) BY MOUTH DAILY WITH 75 MG CAPSULE FOR A TOTAL OF 225 MG
     Route: 048

REACTIONS (2)
  - Suicidal ideation [Unknown]
  - Nervousness [Unknown]
